FAERS Safety Report 7940119-1 (Version None)
Quarter: 2011Q4

REPORT INFORMATION
  Report Type: 
  Country: None (occurrence: None)
  Receive Date: 20111125
  Receipt Date: 20111114
  Transmission Date: 20120403
  Serious: No
  Sender: FDA-Public Use
  Company Number: US-ELI_LILLY_AND_COMPANY-US201103008885

PATIENT
  Sex: Female
  Weight: 64.399 kg

DRUGS (9)
  1. IRON [Concomitant]
  2. RELAFEN [Concomitant]
     Dosage: 750 MG, PRN
     Route: 065
  3. FORTEO [Suspect]
     Indication: OSTEOPOROSIS
     Dosage: 20 UG, QD
     Dates: start: 20110215, end: 20110805
  4. MULTI-VITAMIN [Concomitant]
  5. FORTEO [Suspect]
     Dosage: 20 UG, QD
     Dates: start: 20110901
  6. HUMIRA [Concomitant]
     Dosage: UNK UNK, WEEKLY (1/W)
     Route: 058
  7. CALCIUM [Concomitant]
  8. ASCORBIC ACID [Concomitant]
  9. VITAMIN D [Concomitant]

REACTIONS (1)
  - INJECTION SITE HAEMATOMA [None]
